FAERS Safety Report 21139559 (Version 2)
Quarter: 2022Q3

REPORT INFORMATION
  Report Type: Spontaneous
  Country: IT (occurrence: IT)
  Receive Date: 20220727
  Receipt Date: 20220826
  Transmission Date: 20221027
  Serious: Yes (Death, Other)
  Sender: FDA-Public Use
  Company Number: IT-GILEAD-2022-0591307

PATIENT
  Sex: Male

DRUGS (1)
  1. YESCARTA [Suspect]
     Active Substance: AXICABTAGENE CILOLEUCEL
     Indication: Diffuse large B-cell lymphoma
     Dosage: TOTAL DOSE INFUSED (MILLION OF CAR-T POSITIVE CELLS VIABLE): 200000000
     Route: 042
     Dates: start: 20211211, end: 20211211

REACTIONS (1)
  - Diffuse large B-cell lymphoma [Fatal]
